FAERS Safety Report 13539218 (Version 3)
Quarter: 2017Q2

REPORT INFORMATION
  Report Type: Report from Study
  Country: US (occurrence: US)
  Receive Date: 20170512
  Receipt Date: 20170602
  Transmission Date: 20170830
  Serious: Yes (Death, Hospitalization, Other)
  Sender: FDA-Public Use
  Company Number: US-BRISTOL-MYERS SQUIBB COMPANY-BMS-2017-040540

PATIENT
  Age: 57 Year
  Sex: Male
  Weight: 97.4 kg

DRUGS (1)
  1. NIVOLUMAB [Suspect]
     Active Substance: NIVOLUMAB
     Indication: SQUAMOUS CELL CARCINOMA OF LUNG
     Dosage: 3 MG/KG, UNK
     Route: 042
     Dates: start: 20170216, end: 20170425

REACTIONS (4)
  - Adrenal insufficiency [Unknown]
  - Malignant neoplasm progression [Fatal]
  - Pleural effusion [Unknown]
  - Hypotension [Unknown]

NARRATIVE: CASE EVENT DATE: 20170428
